FAERS Safety Report 7267482-1 (Version None)
Quarter: 2011Q1

REPORT INFORMATION
  Report Type: 
  Country: None (occurrence: None)
  Receive Date: 20110119
  Receipt Date: 20110103
  Transmission Date: 20110831
  Serious: Yes (Hospitalization)
  Sender: FDA-Public Use
  Company Number: DSA_44781_2011

PATIENT
  Age: 27 Year
  Sex: Female

DRUGS (4)
  1. TACROLIMUS [Suspect]
     Indication: PROPHYLAXIS AGAINST TRANSPLANT REJECTION
     Dosage: (3.5 MG BID ORAL) ; (3 MG BID ORAL)
     Route: 048
     Dates: start: 20100801
  2. MYCOPHENOLATE SODIUM (MYCOPHENOLATE SODIUM) [Suspect]
     Indication: PROPHYLAXIS AGAINST TRANSPLANT REJECTION
     Dosage: (360 MG BID ORAL)
     Route: 048
     Dates: start: 20080801, end: 20100223
  3. DILTIAZEM HYDROCHLORIDE [Suspect]
     Indication: PRODUCT USED FOR UNKNOWN INDICATION
     Dosage: (60 MG QD ORAL)
     Route: 048
  4. PANTOPRAZOLE SODIUM [Suspect]
     Indication: PRODUCT USED FOR UNKNOWN INDICATION
     Dosage: (1 DF QD ORAL)
     Route: 048

REACTIONS (9)
  - LEUKOPENIA [None]
  - VOMITING [None]
  - PYREXIA [None]
  - NEUTROPHIL COUNT DECREASED [None]
  - NAUSEA [None]
  - ABDOMINAL PAIN [None]
  - BACTERIAL TEST POSITIVE [None]
  - URINARY TRACT INFECTION [None]
  - DIARRHOEA [None]
